FAERS Safety Report 23740624 (Version 1)
Quarter: 2024Q2

REPORT INFORMATION
  Report Type: Spontaneous
  Country: IT (occurrence: IT)
  Receive Date: 20240415
  Receipt Date: 20240415
  Transmission Date: 20240716
  Serious: Yes (Other)
  Sender: FDA-Public Use
  Company Number: IT-Indoco-000528

PATIENT
  Age: 8 Month
  Sex: Female

DRUGS (1)
  1. BRIMONIDINE [Suspect]
     Active Substance: BRIMONIDINE TARTRATE

REACTIONS (3)
  - Toxicity to various agents [Unknown]
  - Encephalopathy [Recovered/Resolved]
  - Accidental exposure to product by child [Unknown]
